FAERS Safety Report 9634078 (Version 2)
Quarter: 2013Q4

REPORT INFORMATION
  Report Type: Spontaneous
  Country: IT (occurrence: None)
  Receive Date: 20131017
  Receipt Date: 20131212
  Transmission Date: 20140711
  Serious: Yes (Hospitalization)
  Sender: FDA-Public Use
  Company Number: SYM-2013-11566

PATIENT
  Age: 45 Year
  Sex: Male

DRUGS (8)
  1. FLUOROURACIL [Suspect]
     Indication: COLORECTAL CANCER METASTATIC
     Route: 040
     Dates: start: 20130716, end: 20130816
  2. FLUOROURACIL [Suspect]
     Indication: COLORECTAL CANCER METASTATIC
     Route: 040
     Dates: start: 20130716, end: 20130816
  3. AFLIBERCEPT (AFLIBERCEPT) (SOLUTION FOR INFUSION) (AFLIBERCEPT) [Suspect]
     Indication: COLORECTAL CANCER METASTATIC
     Dosage: (NOT OTHERWISE SPECIFIED)
     Route: 042
     Dates: start: 20130816, end: 20130816
  4. AFLIBERCEPT (AFLIBERCEPT) (SOLUTION FOR INFUSION) (AFLIBERCEPT) [Suspect]
     Indication: COLORECTAL CANCER METASTATIC
     Dosage: (NOT OTHERWISE SPECIFIED)
     Route: 042
     Dates: start: 20130816, end: 20130816
  5. IRINOTECAN (IRINOTECAN) (SOLUTION FOR INFUSION) (IRINOTECAN) [Suspect]
     Indication: COLORECTAL CANCER METASTATIC
     Dosage: (NOT OTHERWISE SPECIFIED)
     Route: 042
     Dates: start: 20130816, end: 20130816
  6. IRINOTECAN (IRINOTECAN) (SOLUTION FOR INFUSION) (IRINOTECAN) [Suspect]
     Indication: COLORECTAL CANCER METASTATIC
     Dosage: (NOT OTHERWISE SPECIFIED)
     Route: 042
     Dates: start: 20130816, end: 20130816
  7. LEUCOVORIN (FOLINIC ACID) (SOLUTION FOR INFUSION) (FOLINIC ACID) [Suspect]
     Indication: COLORECTAL CANCER METASTATIC
     Dosage: (NOT OTHERWISE SPECIFIED)
     Route: 042
     Dates: start: 20130816, end: 20130816
  8. LEUCOVORIN (FOLINIC ACID) (SOLUTION FOR INFUSION) (FOLINIC ACID) [Suspect]
     Indication: COLORECTAL CANCER METASTATIC
     Dosage: (NOT OTHERWISE SPECIFIED)
     Route: 042
     Dates: start: 20130816, end: 20130816

REACTIONS (3)
  - Asthenia [None]
  - Abdominal pain [None]
  - Decreased appetite [None]
